FAERS Safety Report 21617479 (Version 1)
Quarter: 2022Q4

REPORT INFORMATION
  Report Type: Spontaneous
  Country: GB (occurrence: GB)
  Receive Date: 20221119
  Receipt Date: 20221119
  Transmission Date: 20230112
  Serious: Yes (Other)
  Sender: FDA-Public Use
  Company Number: None

PATIENT
  Age: 47 Year
  Sex: Female

DRUGS (1)
  1. IMATINIB [Suspect]
     Active Substance: IMATINIB
     Indication: Chronic myeloid leukaemia
     Dosage: UNIT DOSE : 400 MG, THERAPY DURATION : 182 DAYS
     Route: 048
     Dates: start: 20211208, end: 20220608

REACTIONS (1)
  - Hepatic enzyme abnormal [Recovering/Resolving]
